FAERS Safety Report 5316245-2 (Version None)
Quarter: 2007Q2

REPORT INFORMATION
  Report Type: 
  Country: None (occurrence: None)
  Receive Date: 20070503
  Receipt Date: 20070427
  Transmission Date: 20071010
  Serious: Yes (Hospitalization)
  Sender: FDA-Public Use
  Company Number: US-MERCK-0610USA03508

PATIENT
  Age: 44 Year
  Sex: Female

DRUGS (7)
  1. FOSAMAX [Suspect]
     Indication: OSTEOPOROSIS
     Route: 048
     Dates: start: 20020101, end: 20060101
  2. FOSAMAX [Suspect]
     Route: 048
  3. TRILEPTAL [Concomitant]
     Indication: AFFECTIVE DISORDER
     Route: 065
     Dates: start: 19980101
  4. EFFEXOR [Concomitant]
     Indication: DEPRESSION
     Route: 065
     Dates: start: 19980101
  5. ATIVAN [Concomitant]
     Indication: ANXIETY
     Route: 065
     Dates: start: 19980101
  6. BUSPAR [Concomitant]
     Indication: ANXIETY
     Route: 065
     Dates: start: 19980101
  7. ACTONEL [Suspect]
     Indication: OSTEOPOROSIS
     Route: 048
     Dates: start: 20010101

REACTIONS (6)
  - BIPOLAR DISORDER [None]
  - MAJOR DEPRESSION [None]
  - OVERDOSE [None]
  - SUICIDE ATTEMPT [None]
  - TOOTH DISORDER [None]
  - UNDERDOSE [None]
